FAERS Safety Report 17474644 (Version 2)
Quarter: 2020Q1

REPORT INFORMATION
  Report Type: Spontaneous
  Country: TW (occurrence: TW)
  Receive Date: 20200228
  Receipt Date: 20200313
  Transmission Date: 20200409
  Serious: Yes (Hospitalization)
  Sender: FDA-Public Use
  Company Number: TW-ASTRAZENECA-2020SE28030

PATIENT
  Age: 24759 Day
  Sex: Male
  Weight: 59.3 kg

DRUGS (4)
  1. FORXIGA [Suspect]
     Active Substance: DAPAGLIFLOZIN
     Indication: TYPE 2 DIABETES MELLITUS
     Route: 048
     Dates: start: 20200113, end: 20200217
  2. CARVEDILOL. [Concomitant]
     Active Substance: CARVEDILOL
     Indication: HYPERTENSION
     Route: 048
     Dates: start: 20140520, end: 20200217
  3. FORXIGA [Suspect]
     Active Substance: DAPAGLIFLOZIN
     Indication: DIABETIC NEPHROPATHY
     Route: 048
     Dates: start: 20200113, end: 20200217
  4. DIOVAN [Concomitant]
     Active Substance: VALSARTAN
     Indication: DIABETIC NEPHROPATHY
     Route: 048
     Dates: start: 20200113, end: 20200217

REACTIONS (6)
  - Urosepsis [Unknown]
  - Acute kidney injury [Recovered/Resolved]
  - Urinary tract infection [Recovered/Resolved]
  - Renal cyst [Unknown]
  - Hyperglycaemic hyperosmolar nonketotic syndrome [Recovered/Resolved]
  - Septic shock [Recovered/Resolved]

NARRATIVE: CASE EVENT DATE: 20200217
